FAERS Safety Report 5335008-5 (Version None)
Quarter: 2007Q2

REPORT INFORMATION
  Report Type: 
  Country: None (occurrence: None)
  Receive Date: 20070525
  Receipt Date: 20070524
  Transmission Date: 20071010
  Serious: Yes (Other)
  Sender: FDA-Public Use
  Company Number: A0652908A

PATIENT
  Sex: Male

DRUGS (1)
  1. NICORETTE [Suspect]
     Indication: SMOKING CESSATION THERAPY
     Route: 002
     Dates: start: 20050101

REACTIONS (5)
  - EYE PAIN [None]
  - GLAUCOMA [None]
  - HYPERTENSION [None]
  - INTENTIONAL DRUG MISUSE [None]
  - OVERDOSE [None]
